FAERS Safety Report 4332372-0 (Version None)
Quarter: 2004Q2

REPORT INFORMATION
  Report Type: 
  Country: None (occurrence: None)
  Receive Date: 20040401
  Receipt Date: 20040324
  Transmission Date: 20050107
  Serious: Yes (Other)
  Sender: FDA-Public Use
  Company Number: GB-JNJFOC-20040305397

PATIENT
  Age: 24 Year
  Sex: Female

DRUGS (2)
  1. TRAMADOL HCL [Suspect]
     Indication: BACK PAIN
     Dosage: 50 MG, 4 IN 1 DAY, ORAL
     Route: 048
     Dates: start: 20040109, end: 20040224
  2. AMITRIPTYLINE HCL [Concomitant]

REACTIONS (3)
  - ANXIETY [None]
  - FEELING ABNORMAL [None]
  - PANIC REACTION [None]
